FAERS Safety Report 11459879 (Version 2)
Quarter: 2015Q3

REPORT INFORMATION
  Report Type: Spontaneous
  Country: US (occurrence: US)
  Receive Date: 20150904
  Receipt Date: 20150910
  Transmission Date: 20151125
  Serious: Yes (Other)
  Sender: FDA-Public Use
  Company Number: US-PFIZER INC-2015295042

PATIENT
  Age: 57 Year
  Sex: Female
  Weight: 71 kg

DRUGS (2)
  1. METFORMIN HCL [Suspect]
     Active Substance: METFORMIN HYDROCHLORIDE
     Dosage: UNK
  2. GLIBENCLAMIDE [Suspect]
     Active Substance: GLYBURIDE
     Dosage: UNK

REACTIONS (1)
  - Throat tightness [Recovered/Resolved]
